FAERS Safety Report 25563770 (Version 2)
Quarter: 2025Q3

REPORT INFORMATION
  Report Type: Other
  Country: JP (occurrence: JP)
  Receive Date: 20250716
  Receipt Date: 20250805
  Transmission Date: 20251021
  Serious: No
  Sender: BEIGENE
  Company Number: JP-BEIGENE-BGN-2025-011528

PATIENT
  Age: 77 Year

DRUGS (9)
  1. BRUKINSA [Suspect]
     Active Substance: ZANUBRUTINIB
     Indication: Waldenstrom^s macroglobulinaemia
     Dosage: 80 MILLIGRAM, BID
  2. BRUKINSA [Suspect]
     Active Substance: ZANUBRUTINIB
     Dosage: 80 MILLIGRAM, BID
  3. CARVEDILOL [Concomitant]
     Active Substance: CARVEDILOL
  4. ENTRESTO [Concomitant]
     Active Substance: SACUBITRIL\VALSARTAN
  5. PREDONINE [Concomitant]
     Active Substance: PREDNISOLONE
  6. LANSOPRAZOLE [Concomitant]
     Active Substance: LANSOPRAZOLE
  7. FOLIC ACID [Concomitant]
     Active Substance: FOLIC ACID
  8. MAGNESIUM OXIDE [Concomitant]
     Active Substance: MAGNESIUM OXIDE
  9. ITRACONAZOLE [Concomitant]
     Active Substance: ITRACONAZOLE

REACTIONS (1)
  - No adverse event [Unknown]
